FAERS Safety Report 22176752 (Version 1)
Quarter: 2023Q2

REPORT INFORMATION
  Report Type: Spontaneous
  Country: US (occurrence: US)
  Receive Date: 20230405
  Receipt Date: 20230405
  Transmission Date: 20230722
  Serious: No
  Sender: FDA-Public Use
  Company Number: US-SANOFI-01557272

PATIENT
  Age: 21 Year
  Sex: Female

DRUGS (2)
  1. LANTUS SOLOSTAR [Suspect]
     Active Substance: INSULIN GLARGINE
     Indication: Type 2 diabetes mellitus
     Dosage: 7 UNITS IN THE MORNING AND 70 UNITS AT NIGHT
     Route: 065
     Dates: start: 1995
  2. LANTUS SOLOSTAR [Suspect]
     Active Substance: INSULIN GLARGINE
     Dosage: CUT IT BACK TO 50 UNITS
     Route: 065

REACTIONS (7)
  - Conjunctivitis [Unknown]
  - Cough [Unknown]
  - Blood glucose decreased [Unknown]
  - Tremor [Unknown]
  - Product prescribing issue [Unknown]
  - Inappropriate schedule of product administration [Unknown]
  - Intentional product misuse [Unknown]

NARRATIVE: CASE EVENT DATE: 19950101
